FAERS Safety Report 7105090-3 (Version None)
Quarter: 2010Q4

REPORT INFORMATION
  Report Type: 
  Country: None (occurrence: None)
  Receive Date: 20101110
  Receipt Date: 20101026
  Transmission Date: 20110411
  Serious: Yes (Hospitalization)
  Sender: FDA-Public Use
  Company Number: 2010004611

PATIENT
  Sex: Male
  Weight: 87.9978 kg

DRUGS (21)
  1. ERLOTINIB (TABLET) [Suspect]
     Indication: LUNG NEOPLASM MALIGNANT
     Dosage: 150 MG, QD, ORAL
     Route: 048
     Dates: start: 20101004, end: 20101024
  2. PAZOPANIB/PLACEBO [Suspect]
     Indication: LUNG NEOPLASM MALIGNANT
     Dosage: 600 MG, QD
     Dates: start: 20101004
  3. LISINOPRIL [Concomitant]
  4. ADVAIR HFA [Concomitant]
  5. AMLODIPINE [Concomitant]
  6. DIOVAN HCT (CO-DIOVAN) [Concomitant]
  7. HYOSCYAMINE (HYOSCYAMINE) [Concomitant]
  8. MELOXICAM [Concomitant]
  9. ONDANSETRON [Concomitant]
  10. OXYCODONE HCL [Concomitant]
  11. OXYCONTIN [Concomitant]
  12. INSULIN (INSULIN) [Concomitant]
  13. ALBUTAMOL (SALBUTAMOL) [Concomitant]
  14. ADVAIR HFA [Concomitant]
  15. GABAPENTIN [Concomitant]
  16. SPIRIVA [Concomitant]
  17. LYRICA [Concomitant]
  18. PREDNISONE TAB [Concomitant]
  19. FELODIPINE [Concomitant]
  20. SIMVASTATIN [Concomitant]
  21. ZOLOFT [Concomitant]

REACTIONS (1)
  - ANGIOEDEMA [None]
